FAERS Safety Report 5278356-X (Version None)
Quarter: 2007Q1

REPORT INFORMATION
  Report Type: 
  Country: None (occurrence: None)
  Receive Date: 20070328
  Receipt Date: 20070320
  Transmission Date: 20070707
  Serious: Yes (Death)
  Sender: FDA-Public Use
  Company Number: US-BAYER-200710827BWH

PATIENT
  Sex: Female

DRUGS (11)
  1. AVELOX [Suspect]
     Indication: PNEUMONIA
     Route: 048
  2. DRUGS FOR DIABETES [Concomitant]
  3. PROVENTIL-HFA [Concomitant]
     Route: 055
  4. ACTOS [Concomitant]
     Route: 048
  5. GLYBURIDE [Concomitant]
     Dosage: TOTAL DAILY DOSE: 10 MG
     Route: 065
  6. ZESTRIL [Concomitant]
     Route: 048
  7. ZOCOR [Concomitant]
     Route: 048
  8. SYNTHROID [Concomitant]
     Route: 048
  9. NICOTINE [Concomitant]
     Route: 003
  10. ALBUTEROL [Concomitant]
     Route: 055
  11. TYLENOL W/ CODEINE [Concomitant]

REACTIONS (1)
  - DEATH [None]
